FAERS Safety Report 25108384 (Version 5)
Quarter: 2025Q3

REPORT INFORMATION
  Report Type: Report from Study
  Country: US (occurrence: US)
  Receive Date: 20250322
  Receipt Date: 20250717
  Transmission Date: 20251021
  Serious: Yes (Hospitalization, Congenital Anomaly, Other)
  Sender: ABBVIE
  Company Number: US-ABBVIE-6181649

PATIENT
  Sex: Female
  Weight: 7 kg

DRUGS (2)
  1. SKYRIZI [Suspect]
     Active Substance: RISANKIZUMAB-RZAA
     Indication: Maternal exposure timing unspecified
     Route: 064
  2. SKYRIZI [Suspect]
     Active Substance: RISANKIZUMAB-RZAA
     Route: 063

REACTIONS (4)
  - Haemangioma [Not Recovered/Not Resolved]
  - Premature baby [Not Recovered/Not Resolved]
  - Foetal exposure during pregnancy [Unknown]
  - Exposure via breast milk [Unknown]

NARRATIVE: CASE EVENT DATE: 20250124
